FAERS Safety Report 9237260 (Version 4)
Quarter: 2014Q1

REPORT INFORMATION
  Report Type: Report from Study
  Country: US (occurrence: US)
  Receive Date: 20130417
  Receipt Date: 20140304
  Transmission Date: 20141002
  Serious: Yes (Life-Threatening, Hospitalization)
  Sender: FDA-Public Use
  Company Number: US-JNJFOC-20130407293

PATIENT
  Age: 60 Year
  Sex: Male
  Weight: 102.7 kg

DRUGS (5)
  1. USTEKINUMAB [Suspect]
     Indication: PSORIASIS
     Route: 058
     Dates: start: 20091120, end: 20100701
  2. ADALIMUMAB [Suspect]
     Indication: PRODUCT USED FOR UNKNOWN INDICATION
     Dates: start: 201106
  3. MULTIVITAMINS [Concomitant]
     Indication: NUTRITIONAL SUPPLEMENTATION
     Route: 048
     Dates: start: 2006
  4. PNEUMOVAX [Concomitant]
     Indication: PROPHYLAXIS
     Route: 030
     Dates: start: 20121026, end: 20121026
  5. INFLUENZA VACCINE [Concomitant]
     Indication: PROPHYLAXIS
     Route: 030
     Dates: start: 20121026, end: 20121026

REACTIONS (2)
  - Sepsis [Recovered/Resolved]
  - Pyelonephritis [Recovered/Resolved]
